FAERS Safety Report 4557413-7 (Version None)
Quarter: 2005Q1

REPORT INFORMATION
  Report Type: 
  Country: None (occurrence: None)
  Receive Date: 20050120
  Receipt Date: 20050113
  Transmission Date: 20050727
  Serious: Yes (Hospitalization)
  Sender: FDA-Public Use
  Company Number: US-ABBOTT-05P-163-0286600-00

PATIENT
  Sex: Male
  Weight: 76.726 kg

DRUGS (5)
  1. TRICOR [Suspect]
     Indication: BLOOD CHOLESTEROL INCREASED
     Route: 048
     Dates: start: 20040301, end: 20050111
  2. CLOPIDOGREL BISULFATE [Concomitant]
     Indication: CARDIAC DISORDER
     Route: 048
  3. RAMIPRIL [Concomitant]
     Indication: BLOOD PRESSURE INCREASED
     Route: 048
  4. METOPROLOL SUCCINATE [Concomitant]
     Indication: BLOOD PRESSURE INCREASED
     Route: 048
  5. ^FOLTXSF^ [Concomitant]
     Indication: DRUG USE FOR UNKNOWN INDICATION
     Route: 048

REACTIONS (3)
  - ABDOMINAL PAIN UPPER [None]
  - GALLBLADDER OPERATION [None]
  - HEPATIC ENZYME INCREASED [None]
